FAERS Safety Report 8839927 (Version 1)
Quarter: 2012Q4

REPORT INFORMATION
  Report Type: Spontaneous
  Country: US (occurrence: None)
  Receive Date: 20121012
  Receipt Date: 20121012
  Transmission Date: 20130627
  Serious: Yes (Hospitalization, Disabling)
  Sender: FDA-Public Use
  Company Number: None

PATIENT
  Age: 26 Year
  Weight: 55.2 kg

DRUGS (1)
  1. RELISTOR [Suspect]
     Indication: CONSTIPATION
     Route: 058
     Dates: start: 20120914, end: 20120914

REACTIONS (2)
  - Blood creatinine increased [None]
  - Creatinine renal clearance decreased [None]
